FAERS Safety Report 12466603 (Version 1)
Quarter: 2016Q2

REPORT INFORMATION
  Report Type: Spontaneous
  Country: US (occurrence: US)
  Receive Date: 20160615
  Receipt Date: 20160615
  Transmission Date: 20160815
  Serious: No
  Sender: FDA-Public Use
  Company Number: US-VIFOR (INTERNATIONAL) INC.-VIT-2016-02005

PATIENT
  Sex: Male

DRUGS (3)
  1. VELPHORO [Suspect]
     Active Substance: FERRIC OXYHYDROXIDE
     Indication: HYPERPHOSPHATAEMIA
     Route: 048
     Dates: start: 20150218
  2. VELPHORO [Suspect]
     Active Substance: FERRIC OXYHYDROXIDE
     Route: 048
     Dates: start: 201603
  3. RENVELA [Concomitant]
     Active Substance: SEVELAMER CARBONATE
     Dates: end: 201603

REACTIONS (2)
  - Serum ferritin increased [Recovering/Resolving]
  - Tooth discolouration [Unknown]

NARRATIVE: CASE EVENT DATE: 20160413
